FAERS Safety Report 4954034-9 (Version None)
Quarter: 2006Q1

REPORT INFORMATION
  Report Type: 
  Country: None (occurrence: None)
  Receive Date: 20060322
  Receipt Date: 20060308
  Transmission Date: 20060701
  Serious: Yes (Other)
  Sender: FDA-Public Use
  Company Number: 2006036100

PATIENT
  Age: 24 Year
  Sex: Male

DRUGS (1)
  1. CEFOBID [Suspect]
     Indication: SEPSIS
     Dosage: (2 GRAM) INTRAVENOUS
     Route: 042
     Dates: start: 20050622

REACTIONS (1)
  - TOXIC EPIDERMAL NECROLYSIS [None]
